FAERS Safety Report 12457421 (Version 5)
Quarter: 2017Q2

REPORT INFORMATION
  Report Type: Spontaneous
  Country: US (occurrence: US)
  Receive Date: 20160610
  Receipt Date: 20170510
  Transmission Date: 20170830
  Serious: Yes (Other)
  Sender: FDA-Public Use
  Company Number: US-ALEXION-A201604259

PATIENT
  Sex: Female

DRUGS (3)
  1. STRENSIQ [Suspect]
     Active Substance: ASFOTASE ALFA
     Dosage: UNK, DOSE DECREASED
     Route: 058
  2. STRENSIQ [Suspect]
     Active Substance: ASFOTASE ALFA
     Dosage: UNK
     Route: 058
  3. STRENSIQ [Suspect]
     Active Substance: ASFOTASE ALFA
     Indication: HYPOPHOSPHATASIA
     Dosage: 2 MG/KG, TIW
     Route: 058

REACTIONS (9)
  - Blood alkaline phosphatase increased [Recovering/Resolving]
  - Injection site erythema [Unknown]
  - Tremor [Unknown]
  - Brain injury [Unknown]
  - Memory impairment [Unknown]
  - Nerve stimulation test abnormal [Unknown]
  - Hypertension [Unknown]
  - Fatigue [Recovering/Resolving]
  - Thinking abnormal [Unknown]

NARRATIVE: CASE EVENT DATE: 20160622
